FAERS Safety Report 18515227 (Version 3)
Quarter: 2021Q3

REPORT INFORMATION
  Report Type: Other
  Country: CA (occurrence: CA)
  Receive Date: 20201118
  Receipt Date: 20210923
  Transmission Date: 20211014
  Serious: Yes (Hospitalization, Other)
  Sender: FDA-Public Use
  Company Number: CA-CELLTRION INC.-2020CA031393

PATIENT

DRUGS (11)
  1. ACTEMRA [Suspect]
     Active Substance: TOCILIZUMAB
     Indication: JUVENILE IDIOPATHIC ARTHRITIS
     Dosage: 560 MILLIGRAM, 1 EVERY 4 WEEKS
     Route: 042
  2. ACTEMRA [Suspect]
     Active Substance: TOCILIZUMAB
     Dosage: 496 MILLIGRAM, 1 EVERY 4 WEEKS
     Route: 042
  3. LOSEC [Concomitant]
     Active Substance: OMEPRAZOLE
  4. RITUXIMAB. [Suspect]
     Active Substance: RITUXIMAB
     Indication: JUVENILE IDIOPATHIC ARTHRITIS
     Route: 042
  5. ACTEMRA [Suspect]
     Active Substance: TOCILIZUMAB
     Dosage: 480 MILLIGRAM, 1 EVERY 4 WEEKS
     Route: 042
  6. BENADRYL [Concomitant]
     Active Substance: DIPHENHYDRAMINE HYDROCHLORIDE
  7. DICLOFENAC [Concomitant]
     Active Substance: DICLOFENAC
  8. LEUCOVORIN. [Concomitant]
     Active Substance: LEUCOVORIN
  9. METHOTREXATE. [Concomitant]
     Active Substance: METHOTREXATE
     Dosage: 20.0 MILLIGRAM
     Route: 065
  10. PREDNISONE. [Concomitant]
     Active Substance: PREDNISONE
     Indication: JUVENILE IDIOPATHIC ARTHRITIS
  11. ENBREL [Concomitant]
     Active Substance: ETANERCEPT

REACTIONS (9)
  - Hypophagia [Unknown]
  - Contrast media allergy [Unknown]
  - Neck pain [Unknown]
  - Vomiting [Unknown]
  - Glioblastoma [Unknown]
  - Brain neoplasm [Unknown]
  - Headache [Unknown]
  - Weight increased [Unknown]
  - Off label use [Unknown]
